FAERS Safety Report 5722081-5 (Version None)
Quarter: 2008Q2

REPORT INFORMATION
  Report Type: 
  Country: None (occurrence: None)
  Receive Date: 20080429
  Receipt Date: 20070606
  Transmission Date: 20081010
  Serious: No
  Sender: FDA-Public Use
  Company Number: US-ASTRAZENECA-2007UW13661

PATIENT
  Age: 62 Year
  Sex: Female
  Weight: 46.7 kg

DRUGS (5)
  1. NEXIUM [Suspect]
     Indication: GASTROOESOPHAGEAL REFLUX DISEASE
     Route: 048
  2. NEXIUM [Suspect]
     Route: 048
  3. NEXIUM [Suspect]
     Route: 048
     Dates: start: 20070301
  4. NEXIUM [Suspect]
     Route: 048
     Dates: start: 20070301
  5. GLUCOSAMINE [Concomitant]

REACTIONS (3)
  - EAR PAIN [None]
  - HYPOACUSIS [None]
  - PHARYNGOLARYNGEAL PAIN [None]
